FAERS Safety Report 8194489-2 (Version None)
Quarter: 2012Q1

REPORT INFORMATION
  Report Type: 
  Country: None (occurrence: None)
  Receive Date: 20120308
  Receipt Date: 20110324
  Transmission Date: 20120608
  Serious: No
  Sender: FDA-Public Use
  Company Number: US-GLAXOSMITHKLINE-A0919782A

PATIENT
  Age: 44 Year
  Sex: Male

DRUGS (1)
  1. NICOTINE POLACRILEX [Suspect]
     Indication: EX-TOBACCO USER

REACTIONS (8)
  - SWOLLEN TONGUE [None]
  - PARAESTHESIA ORAL [None]
  - SEBORRHOEA [None]
  - HYPERSENSITIVITY [None]
  - PAIN IN EXTREMITY [None]
  - SKIN EXFOLIATION [None]
  - DYSPNOEA [None]
  - FORMICATION [None]
